FAERS Safety Report 9223679 (Version 1)
Quarter: 2013Q2

REPORT INFORMATION
  Report Type: Report from Study
  Country: VE (occurrence: VE)
  Receive Date: 20130410
  Receipt Date: 20130410
  Transmission Date: 20140414
  Serious: Yes (Hospitalization, Other)
  Sender: FDA-Public Use
  Company Number: VE-ABBOTT-13P-178-1072933-00

PATIENT
  Age: 88 Year
  Sex: Male
  Weight: 60 kg

DRUGS (5)
  1. HUMIRA [Suspect]
     Indication: RHEUMATOID ARTHRITIS
     Route: 058
     Dates: start: 20120409, end: 201210
  2. NATRILIX [Concomitant]
     Indication: HYPERTENSION
     Route: 048
  3. PLAVIX [Concomitant]
     Indication: HYPERTENSION
     Route: 048
  4. ATORVASTATIN [Concomitant]
     Indication: HYPERLIPIDAEMIA
     Route: 048
  5. ARAVA [Concomitant]
     Indication: RHEUMATOID ARTHRITIS
     Route: 048

REACTIONS (4)
  - Chronic obstructive pulmonary disease [Recovered/Resolved]
  - Hip fracture [Recovered/Resolved]
  - Fall [Recovered/Resolved]
  - Myocardial infarction [Recovering/Resolving]
